FAERS Safety Report 12118055 (Version 1)
Quarter: 2016Q1

REPORT INFORMATION
  Report Type: Spontaneous
  Country: US (occurrence: None)
  Receive Date: 20160225
  Receipt Date: 20160225
  Transmission Date: 20160526
  Serious: Yes (Death)
  Sender: FDA-Public Use
  Company Number: None

PATIENT
  Age: 87 Year
  Sex: Female
  Weight: 0 kg

DRUGS (1)
  1. ADCIRCA [Suspect]
     Active Substance: TADALAFIL
     Indication: COR PULMONALE CHRONIC
     Dosage: ORAL 047 20MG ORAL QDAY
     Route: 048
     Dates: start: 20150916, end: 20160207

REACTIONS (1)
  - Death [None]

NARRATIVE: CASE EVENT DATE: 20160207
